FAERS Safety Report 8762008 (Version 2)
Quarter: 2012Q4

REPORT INFORMATION
  Report Type: 
  Country: US (occurrence: US)
  Receive Date: 20120830
  Receipt Date: 20120906
  Transmission Date: 20130627
  Serious: Yes (Other)
  Sender: FDA-Public Use
  Company Number: US-PFIZER INC-2012208795

PATIENT
  Sex: Female

DRUGS (7)
  1. CEFPODOXIME PROXETIL [Suspect]
     Indication: URINARY TRACT INFECTION
     Dosage: 200 mg, 2x/day
     Dates: start: 20120820, end: 20120823
  2. PROTONIX [Suspect]
     Indication: GASTROOESOPHAGEAL REFLUX DISEASE
     Dosage: 20 mg, daily
  3. GABAPENTIN [Suspect]
     Indication: NEUROPATHY PERIPHERAL
     Dosage: 300 mg, daily at bedtime
  4. HEPARIN SODIUM [Suspect]
     Indication: THROMBOSIS PROPHYLAXIS
     Dosage: 5000 IU, every 8 hours
     Route: 058
  5. SIMVASTATIN [Suspect]
     Indication: HYPERLIPIDAEMIA
     Dosage: 40 mg, daily at bedtime
  6. ATENOLOL [Suspect]
     Indication: HYPERTENSION
     Dosage: 25 mg, daily
  7. PAXIL [Suspect]
     Indication: ANXIETY
     Dosage: 30 mg, daily

REACTIONS (2)
  - Agranulocytosis [Unknown]
  - Blood disorder [Unknown]
